FAERS Safety Report 9602869 (Version 2)
Quarter: 2013Q4

REPORT INFORMATION
  Report Type: Spontaneous
  Country: US (occurrence: US)
  Receive Date: 20131007
  Receipt Date: 20131007
  Transmission Date: 20140711
  Serious: Yes (Death)
  Sender: FDA-Public Use
  Company Number: US-CELGENEUS-163-21880-11052651

PATIENT
  Age: 59 Year
  Sex: Male

DRUGS (11)
  1. REVLIMID [Suspect]
     Indication: PLASMA CELL MYELOMA
     Dosage: 10 MILLIGRAM
     Route: 048
     Dates: start: 20101101
  2. REVLIMID [Suspect]
     Dosage: 25-10MG
     Route: 048
     Dates: start: 20101129
  3. REVLIMID [Suspect]
     Dosage: 15 MILLIGRAM
     Route: 048
     Dates: start: 201103, end: 2011
  4. REVLIMID [Suspect]
     Dosage: 10 MILLIGRAM
     Route: 048
     Dates: start: 201104, end: 2011
  5. THALOMID [Suspect]
     Indication: PLASMA CELL LEUKAEMIA
     Route: 048
     Dates: start: 20110420, end: 20110517
  6. DEXAMETHASONE [Concomitant]
     Indication: PLASMA CELL MYELOMA
     Route: 065
     Dates: start: 20101101
  7. VELCADE [Concomitant]
     Indication: PLASMA CELL MYELOMA
     Route: 065
     Dates: start: 20101227
  8. CISPLATIN [Concomitant]
     Indication: PLASMA CELL LEUKAEMIA
     Route: 065
     Dates: start: 20110420, end: 20110517
  9. DOXORUBICIN [Concomitant]
     Indication: PLASMA CELL LEUKAEMIA
     Route: 065
     Dates: start: 20110420, end: 20110517
  10. CYCLOPHOSPHAMIDE [Concomitant]
     Indication: PLASMA CELL LEUKAEMIA
     Route: 065
     Dates: start: 20110420, end: 20110517
  11. ETOPOSIDE [Concomitant]
     Indication: PLASMA CELL LEUKAEMIA
     Route: 065
     Dates: start: 20110420, end: 20110517

REACTIONS (3)
  - Acute graft versus host disease [Fatal]
  - Plasma cell leukaemia [Fatal]
  - Sepsis [Fatal]
